FAERS Safety Report 25306060 (Version 3)
Quarter: 2025Q3

REPORT INFORMATION
  Report Type: Spontaneous
  Country: US (occurrence: US)
  Receive Date: 20250513
  Receipt Date: 20250722
  Transmission Date: 20251021
  Serious: Yes (Hospitalization, Other)
  Sender: BIOVITRUM
  Company Number: US-BIOVITRUM-2025-US-006559

PATIENT
  Age: 57 Year
  Sex: Male

DRUGS (2)
  1. VONJO [Suspect]
     Active Substance: PACRITINIB
     Indication: Myeloproliferative neoplasm
     Route: 048
     Dates: start: 20250127
  2. VONJO [Suspect]
     Active Substance: PACRITINIB
     Indication: Pancytopenia
     Route: 048
     Dates: start: 20250419

REACTIONS (8)
  - Platelet count decreased [Unknown]
  - Haemoglobin decreased [Unknown]
  - Off label use [Not Recovered/Not Resolved]
  - Nephrolithiasis [Unknown]
  - Anxiety [Unknown]
  - Fear [Unknown]
  - Product dose omission issue [Unknown]
  - Asthenia [Unknown]

NARRATIVE: CASE EVENT DATE: 20250127
